FAERS Safety Report 5302079-1 (Version None)
Quarter: 2007Q2

REPORT INFORMATION
  Report Type: 
  Country: None (occurrence: None)
  Receive Date: 20070419
  Receipt Date: 20070413
  Transmission Date: 20071010
  Serious: Yes (Hospitalization)
  Sender: FDA-Public Use
  Company Number: US-GLAXOSMITHKLINE-A0647223A

PATIENT
  Age: 63 Year
  Sex: Male
  Weight: 85 kg

DRUGS (1)
  1. DUTASTERIDE [Suspect]
     Indication: BENIGN PROSTATIC HYPERPLASIA
     Dosage: .5MG PER DAY
     Route: 048
     Dates: start: 20040710

REACTIONS (1)
  - OSTEOARTHRITIS [None]
